FAERS Safety Report 19361308 (Version 1)
Quarter: 2021Q2

REPORT INFORMATION
  Report Type: Spontaneous
  Country: US (occurrence: US)
  Receive Date: 20210601
  Receipt Date: 20210601
  Transmission Date: 20210717
  Serious: Yes (Other)
  Sender: FDA-Public Use
  Company Number: US-SA-2021SA181532

PATIENT
  Age: 69 Year
  Sex: Male

DRUGS (8)
  1. NUCYNTA [Concomitant]
     Active Substance: TAPENTADOL HYDROCHLORIDE
  2. ALBUTEROL SULFATE. [Concomitant]
     Active Substance: ALBUTEROL SULFATE
  3. LYRICA [Concomitant]
     Active Substance: PREGABALIN
  4. EPINEPHRINE. [Concomitant]
     Active Substance: EPINEPHRINE
  5. DUPIXENT [Suspect]
     Active Substance: DUPILUMAB
     Dosage: 300 MG, QOW
     Route: 058
  6. XTAMPZA ER [Concomitant]
     Active Substance: OXYCODONE
  7. DUPIXENT [Suspect]
     Active Substance: DUPILUMAB
     Indication: ILLNESS
     Dosage: 600 MG, 1X
     Route: 058
     Dates: start: 202011, end: 202011
  8. ARMODAFINIL. [Concomitant]
     Active Substance: ARMODAFINIL

REACTIONS (3)
  - Product use in unapproved indication [Unknown]
  - Swelling face [Unknown]
  - Epistaxis [Unknown]

NARRATIVE: CASE EVENT DATE: 202011
